FAERS Safety Report 9381121 (Version 1)
Quarter: 2013Q3

REPORT INFORMATION
  Report Type: Spontaneous
  Country: US (occurrence: US)
  Receive Date: 20130703
  Receipt Date: 20130703
  Transmission Date: 20140515
  Serious: No
  Sender: FDA-Public Use
  Company Number: US-BIOGENIDEC-2013BI059060

PATIENT
  Age: 42 Year
  Sex: Male

DRUGS (7)
  1. TYSABRI [Suspect]
     Indication: MULTIPLE SCLEROSIS
     Route: 042
     Dates: start: 20120910, end: 201303
  2. PROVIGIL [Concomitant]
     Indication: FATIGUE
  3. FLEXERIL [Concomitant]
     Indication: MUSCLE SPASMS
  4. ELAVIL [Concomitant]
     Indication: DEPRESSION
  5. CYMBALTA [Concomitant]
     Indication: DEPRESSION
  6. CYMBALTA [Concomitant]
     Indication: PAIN
  7. XANAX [Concomitant]
     Indication: DEPRESSION

REACTIONS (7)
  - Depression [Not Recovered/Not Resolved]
  - Muscle spasms [Not Recovered/Not Resolved]
  - Pain in extremity [Not Recovered/Not Resolved]
  - Hypoaesthesia [Not Recovered/Not Resolved]
  - Vision blurred [Not Recovered/Not Resolved]
  - Diplopia [Not Recovered/Not Resolved]
  - Fatigue [Not Recovered/Not Resolved]
